FAERS Safety Report 11893454 (Version 1)
Quarter: 2016Q1

REPORT INFORMATION
  Report Type: Spontaneous
  Country: US (occurrence: US)
  Receive Date: 20160106
  Receipt Date: 20160106
  Transmission Date: 20160526
  Serious: Yes (Other)
  Sender: FDA-Public Use
  Company Number: US-BRISTOL-MYERS SQUIBB COMPANY-BMS-2015-091492

PATIENT
  Sex: Female
  Weight: 79.37 kg

DRUGS (2)
  1. SPRYCEL [Suspect]
     Active Substance: DASATINIB
     Indication: CHRONIC MYELOID LEUKAEMIA
     Dosage: 100 MG, QD
     Route: 065
  2. SPRYCEL [Suspect]
     Active Substance: DASATINIB
     Dosage: 50 MG, QD
     Route: 065

REACTIONS (5)
  - Face oedema [Unknown]
  - Incorrect dose administered [Unknown]
  - Paraesthesia [Unknown]
  - Chills [Unknown]
  - Knee arthroplasty [Unknown]
